FAERS Safety Report 16491355 (Version 1)
Quarter: 2019Q3

REPORT INFORMATION
  Report Type: Spontaneous
  Country: US (occurrence: US)
  Receive Date: 20190627
  Receipt Date: 20190627
  Transmission Date: 20191004
  Serious: Yes (Other)
  Sender: FDA-Public Use
  Company Number: None

PATIENT
  Age: 62 Year
  Sex: Female
  Weight: 63.45 kg

DRUGS (15)
  1. ENOXAPARIN [Concomitant]
     Active Substance: ENOXAPARIN
  2. LETROZOLE. [Concomitant]
     Active Substance: LETROZOLE
  3. TRIAMCINOLONE [Concomitant]
     Active Substance: TRIAMCINOLONE
  4. PENICILLIN [Concomitant]
     Active Substance: PENICILLIN
  5. PRAVASTATIN. [Concomitant]
     Active Substance: PRAVASTATIN
  6. WARFARIN [Concomitant]
     Active Substance: WARFARIN
  7. CAPECITABINE. [Suspect]
     Active Substance: CAPECITABINE
     Indication: BREAST CANCER FEMALE
     Route: 048
     Dates: start: 20190423
  8. LORAZEPAM. [Concomitant]
     Active Substance: LORAZEPAM
  9. NYSTATIN. [Concomitant]
     Active Substance: NYSTATIN
  10. CARAFATE [Concomitant]
     Active Substance: SUCRALFATE
  11. DIPHENOXYLATE-ATROPINE [Concomitant]
     Active Substance: ATROPINE\DIPHENOXYLATE
  12. ZOFRAN [Concomitant]
     Active Substance: ONDANSETRON HYDROCHLORIDE
  13. LASIX [Concomitant]
     Active Substance: FUROSEMIDE
  14. OMEPRAZOLE. [Concomitant]
     Active Substance: OMEPRAZOLE
  15. NORCO [Concomitant]
     Active Substance: ACETAMINOPHEN\HYDROCODONE BITARTRATE

REACTIONS (5)
  - Asthenia [None]
  - Disease progression [None]
  - Metastases to lung [None]
  - Decreased appetite [None]
  - Metastases to central nervous system [None]
